FAERS Safety Report 21082218 (Version 1)
Quarter: 2022Q3

REPORT INFORMATION
  Report Type: Spontaneous
  Country: FR (occurrence: FR)
  Receive Date: 20220714
  Receipt Date: 20220714
  Transmission Date: 20221027
  Serious: Yes (Hospitalization)
  Sender: FDA-Public Use
  Company Number: None

PATIENT
  Age: 77 Year
  Sex: Female
  Weight: 99 kg

DRUGS (4)
  1. ACYCLOVIR [Suspect]
     Active Substance: ACYCLOVIR
     Indication: Meningitis herpes
     Dosage: 700MG EVERY 8 HOURS, 1400 MG, DURATION : 17 DAY, FREQUENCY TIME : 1 DAYS
     Route: 065
     Dates: start: 20220418, end: 20220505
  2. ACYCLOVIR [Suspect]
     Active Substance: ACYCLOVIR
     Dosage: 1 GRAM DAILY; 500MG EVERY 12 HOURS, UNIT DOSE : 1 G, DURATION : 1 DAY,
     Route: 065
     Dates: start: 20220418, end: 20220418
  3. ACYCLOVIR [Suspect]
     Active Substance: ACYCLOVIR
     Dosage: 3 GRAM DAILY; 1G 3/DAY, UNIT DOSE : 3G, DURATION : 1 DAY
     Route: 065
     Dates: start: 20220415, end: 20220418
  4. NICARDIPINE HYDROCHLORIDE [Concomitant]
     Active Substance: NICARDIPINE HYDROCHLORIDE
     Indication: Product used for unknown indication
     Dosage: 100 MILLIGRAM DAILY; 50 MG MORNING AND EVENING,  THERAPY START DATE  : NASK,  UNIT DOSE : 100MG , ST
     Route: 065

REACTIONS (2)
  - Acute kidney injury [Recovered/Resolved]
  - Pyrexia [Recovered/Resolved]

NARRATIVE: CASE EVENT DATE: 20220415
